FAERS Safety Report 23187241 (Version 1)
Quarter: 2023Q4

REPORT INFORMATION
  Report Type: Spontaneous
  Country: US (occurrence: US)
  Receive Date: 20231115
  Receipt Date: 20231115
  Transmission Date: 20240109
  Serious: Yes (Other)
  Sender: FDA-Public Use
  Company Number: US-PPDUS-2023ST004236

PATIENT
  Age: 66 Year
  Sex: Female

DRUGS (1)
  1. ORSERDU [Suspect]
     Active Substance: ELACESTRANT
     Indication: Product used for unknown indication
     Route: 048
     Dates: start: 20230812

REACTIONS (5)
  - Renal impairment [Recovering/Resolving]
  - Muscle strain [Unknown]
  - Spinal disorder [Unknown]
  - Stress fracture [Unknown]
  - Vomiting [Recovering/Resolving]
